FAERS Safety Report 14094009 (Version 1)
Quarter: 2017Q4

REPORT INFORMATION
  Report Type: Spontaneous
  Country: US (occurrence: US)
  Receive Date: 20171016
  Receipt Date: 20171016
  Transmission Date: 20180321
  Serious: No
  Sender: FDA-Public Use
  Company Number: US-AMGEN-USASP2017024359

PATIENT
  Age: 73 Year
  Sex: Male

DRUGS (2)
  1. PROSTEON [Suspect]
     Active Substance: MINERALS
     Indication: PRODUCT USED FOR UNKNOWN INDICATION
     Route: 065
  2. PROLIA [Suspect]
     Active Substance: DENOSUMAB
     Indication: BONE LOSS
     Dosage: UNK
     Route: 065

REACTIONS (4)
  - Off label use [Unknown]
  - Arthralgia [Recovering/Resolving]
  - Mobility decreased [Recovering/Resolving]
  - Musculoskeletal stiffness [Recovering/Resolving]
